FAERS Safety Report 13708579 (Version 5)
Quarter: 2018Q3

REPORT INFORMATION
  Report Type: Report from Study
  Country: US (occurrence: US)
  Receive Date: 20170630
  Receipt Date: 20180917
  Transmission Date: 20181010
  Serious: Yes (Death, Hospitalization)
  Sender: FDA-Public Use
  Company Number: US-B.I. PHARMACEUTICALS,INC./RIDGEFIELD-2017-BI-035939

PATIENT
  Age: 77 Year
  Sex: Female
  Weight: 51.5 kg

DRUGS (1)
  1. BIBW 2992 [Suspect]
     Active Substance: AFATINIB
     Indication: NON-SMALL CELL LUNG CANCER
     Dosage: 9 DOSES ADMINISTERED THIS CYCLE WITH EACH DOSE OF 40MG
     Route: 048
     Dates: start: 20170607, end: 20170615

REACTIONS (8)
  - Confusional state [Not Recovered/Not Resolved]
  - Wrist fracture [Unknown]
  - Muscular weakness [Not Recovered/Not Resolved]
  - General physical health deterioration [Fatal]
  - Fall [Not Recovered/Not Resolved]
  - Diarrhoea [Not Recovered/Not Resolved]
  - Memory impairment [Not Recovered/Not Resolved]
  - Pain in extremity [Not Recovered/Not Resolved]

NARRATIVE: CASE EVENT DATE: 20170611
